FAERS Safety Report 6871164-5 (Version None)
Quarter: 2010Q3

REPORT INFORMATION
  Report Type: 
  Country: None (occurrence: None)
  Receive Date: 20100723
  Receipt Date: 20100712
  Transmission Date: 20110219
  Serious: Yes (Hospitalization, Other)
  Sender: FDA-Public Use
  Company Number: US-PFIZER INC-2010019286

PATIENT
  Sex: Female

DRUGS (5)
  1. CHANTIX [Suspect]
     Indication: SMOKING CESSATION THERAPY
     Dosage: 0.5MG UP TO 2MG
     Route: 048
     Dates: start: 20070715, end: 20070812
  2. PROAIR HFA [Concomitant]
     Indication: ASTHMA
     Dosage: UNK
     Dates: start: 20060101
  3. LITHIUM [Concomitant]
     Indication: BIPOLAR DISORDER
     Dosage: 900 MG, UNK
     Dates: start: 20060101
  4. ABILIFY [Concomitant]
     Indication: MOOD SWINGS
     Dosage: 30 MG, UNK
     Dates: start: 20020101
  5. PROZAC [Concomitant]
     Indication: DEPRESSION
     Dosage: 60 MG, UNK
     Dates: start: 20060101

REACTIONS (7)
  - AGGRESSION [None]
  - ANXIETY [None]
  - DEPRESSION [None]
  - INTENTIONAL OVERDOSE [None]
  - MUSCLE SPASTICITY [None]
  - SUICIDE ATTEMPT [None]
  - WOUND INFECTION [None]
